FAERS Safety Report 16992757 (Version 1)
Quarter: 2019Q4

REPORT INFORMATION
  Report Type: Spontaneous
  Country: US (occurrence: US)
  Receive Date: 20191105
  Receipt Date: 20191105
  Transmission Date: 20200122
  Serious: No
  Sender: FDA-Public Use
  Company Number: US-B.I. PHARMACEUTICALS,INC./RIDGEFIELD-2019-US-110661

PATIENT
  Age: 65 Year
  Sex: Female

DRUGS (3)
  1. GILOTRIF [Suspect]
     Active Substance: AFATINIB
     Dosage: 20MG DAILY
     Route: 065
     Dates: start: 201905, end: 201906
  2. GILOTRIF [Suspect]
     Active Substance: AFATINIB
     Dosage: 30MG DAILY
     Route: 065
     Dates: start: 201907
  3. GILOTRIF [Suspect]
     Active Substance: AFATINIB
     Indication: NON-SMALL CELL LUNG CANCER
     Dosage: 40MG DAILY
     Route: 065
     Dates: start: 201903, end: 201904

REACTIONS (3)
  - Paranasal sinus hypersecretion [Unknown]
  - Cough [Unknown]
  - Rash [Recovered/Resolved]

NARRATIVE: CASE EVENT DATE: 201903
